FAERS Safety Report 18061558 (Version 1)
Quarter: 2020Q3

REPORT INFORMATION
  Report Type: Spontaneous
  Country: US (occurrence: US)
  Receive Date: 20200723
  Receipt Date: 20200723
  Transmission Date: 20201103
  Serious: Yes (Other)
  Sender: FDA-Public Use
  Company Number: US-GILEAD-2020-0484363

PATIENT
  Age: 62 Year
  Sex: Male
  Weight: 50.3 kg

DRUGS (14)
  1. INSULIN LISPRO [Concomitant]
     Active Substance: INSULIN LISPRO
     Dosage: UNK
     Dates: start: 20200712, end: 20200714
  2. TACROLIMUS. [Concomitant]
     Active Substance: TACROLIMUS
     Dosage: UNK
     Dates: start: 20200710, end: 20200713
  3. MIDAZOLAM. [Concomitant]
     Active Substance: MIDAZOLAM
     Dosage: UNK
     Dates: start: 20200710, end: 20200713
  4. NOREPINEPHRINE. [Concomitant]
     Active Substance: NOREPINEPHRINE
     Dosage: UNK
     Dates: start: 20200710, end: 20200714
  5. SODIUM BICARBONATE. [Concomitant]
     Active Substance: SODIUM BICARBONATE
     Dosage: UNK
     Dates: start: 20200710, end: 20200710
  6. DEXMEDETOMIDINE. [Concomitant]
     Active Substance: DEXMEDETOMIDINE
     Dosage: UNK
     Dates: start: 20200714, end: 20200714
  7. CEFEPIME [Concomitant]
     Active Substance: CEFEPIME HYDROCHLORIDE
     Dosage: UNK
     Dates: start: 20200710, end: 20200714
  8. INSULIN GLARGINE [Concomitant]
     Active Substance: INSULIN GLARGINE
     Dosage: UNK
     Dates: start: 20200712, end: 20200714
  9. MYCOPHENOLATE [Concomitant]
     Active Substance: MYCOPHENOLIC ACID
     Dosage: UNK
     Dates: start: 20200710, end: 20200714
  10. LINEZOLID. [Concomitant]
     Active Substance: LINEZOLID
     Dosage: UNK
     Dates: start: 20200710, end: 20200714
  11. REMDESIVIR. [Suspect]
     Active Substance: REMDESIVIR
     Indication: COVID-19
     Dosage: 100 MG, QD
     Route: 042
     Dates: start: 20200711, end: 20200713
  12. DEXAMETHASONE. [Concomitant]
     Active Substance: DEXAMETHASONE
     Dosage: UNK
     Dates: start: 20200710, end: 20200714
  13. HEPARIN [Concomitant]
     Active Substance: HEPARIN SODIUM
     Dosage: UNK
     Dates: start: 20200710, end: 20200714
  14. FENTANYL. [Concomitant]
     Active Substance: FENTANYL
     Dosage: UNK
     Dates: start: 20200710, end: 20200714

REACTIONS (1)
  - Acute kidney injury [Unknown]

NARRATIVE: CASE EVENT DATE: 20200713
